FAERS Safety Report 5979903-2 (Version None)
Quarter: 2008Q4

REPORT INFORMATION
  Report Type: 
  Country: None (occurrence: None)
  Receive Date: 20081205
  Receipt Date: 20081127
  Transmission Date: 20090506
  Serious: Yes (Hospitalization)
  Sender: FDA-Public Use
  Company Number: CA-ASTRAZENECA-2008UW17390

PATIENT
  Age: 49 Year
  Sex: Female

DRUGS (23)
  1. SEROQUEL XR [Suspect]
     Indication: SCHIZOPHRENIA
     Dosage: 300 MG
     Route: 048
     Dates: start: 20080628, end: 20080628
  2. SEROQUEL XR [Suspect]
     Dosage: 600 MG
     Route: 048
     Dates: start: 20080629, end: 20080801
  3. LOXAPINE [Concomitant]
     Indication: SCHIZOPHRENIA, PARANOID TYPE
     Route: 048
     Dates: end: 20080620
  4. SEROQUEL [Concomitant]
     Indication: SCHIZOPHRENIA, PARANOID TYPE
     Route: 048
     Dates: start: 20080621, end: 20080627
  5. OMEPRAZOLE [Concomitant]
     Indication: GASTROOESOPHAGEAL REFLUX DISEASE
     Route: 048
     Dates: end: 20080820
  6. SALBUTAMOL [Concomitant]
     Indication: ASTHMA
     Route: 055
  7. COLACE [Concomitant]
     Indication: CONSTIPATION
     Route: 048
     Dates: end: 20080820
  8. FLOVENT [Concomitant]
     Indication: ASTHMA
     Dosage: 125 MCG
  9. RHINOLAR [Concomitant]
     Indication: NASAL CONGESTION
     Route: 048
     Dates: end: 20080820
  10. RHINOLAR [Concomitant]
     Route: 048
     Dates: start: 20080912
  11. ELTROXIN [Concomitant]
     Indication: HYPOTHYROIDISM
     Route: 048
     Dates: end: 20080820
  12. ELTROXIN [Concomitant]
     Route: 048
     Dates: start: 20080908
  13. MELOXICAM [Concomitant]
     Indication: OSTEOARTHRITIS
     Route: 048
     Dates: end: 20080820
  14. TYLENOL W/ CODEINE NO. 3 [Concomitant]
     Indication: SCOLIOSIS
     Route: 048
     Dates: end: 20080820
  15. TYLENOL W/ CODEINE NO. 3 [Concomitant]
     Indication: HEADACHE
     Route: 048
     Dates: end: 20080820
  16. GLUCOSAMINE [Concomitant]
     Indication: OSTEOARTHRITIS
     Route: 048
     Dates: end: 20080820
  17. METAMUCIL [Concomitant]
     Indication: IRRITABLE BOWEL SYNDROME
     Route: 048
     Dates: end: 20080820
  18. COGENTIN [Concomitant]
     Indication: EXTRAPYRAMIDAL DISORDER
     Route: 048
     Dates: end: 20080626
  19. MOBICOX [Concomitant]
     Indication: OSTEOARTHRITIS
     Route: 048
     Dates: start: 20080926
  20. MOBICOX [Concomitant]
     Route: 048
     Dates: start: 20080912
  21. PERPHENAZINE [Concomitant]
     Indication: EXTRAPYRAMIDAL DISORDER
     Route: 048
     Dates: start: 20080927
  22. ATIVAN [Concomitant]
     Indication: ANXIETY
     Route: 048
     Dates: start: 20080820, end: 20080901
  23. PREVACID [Concomitant]
     Indication: GASTROOESOPHAGEAL REFLUX DISEASE
     Route: 048

REACTIONS (1)
  - SCHIZOPHRENIA [None]
